FAERS Safety Report 6262473-1 (Version None)
Quarter: 2009Q3

REPORT INFORMATION
  Report Type: 
  Country: None (occurrence: None)
  Receive Date: 20090709
  Receipt Date: 20090625
  Transmission Date: 20100115
  Serious: Yes (Life-Threatening, Hospitalization, Disabling, Other)
  Sender: FDA-Public Use
  Company Number: GB-MYLANLABS-2009S1009857

PATIENT
  Age: 56 Year
  Sex: Female
  Weight: 71 kg

DRUGS (4)
  1. SERTRALINE [Suspect]
     Indication: DEPRESSION
     Route: 048
     Dates: start: 20070521, end: 20090111
  2. LAMOTRIGINE [Concomitant]
     Indication: BIPOLAR DISORDER
  3. LERCANIDIPINE [Concomitant]
     Indication: HYPERTENSION
  4. TRAMADOL [Concomitant]
     Indication: MUSCULOSKELETAL PAIN

REACTIONS (3)
  - DIABETES MELLITUS [None]
  - PANCREATIC PSEUDOCYST [None]
  - PANCREATITIS NECROTISING [None]
